FAERS Safety Report 18712219 (Version 1)
Quarter: 2021Q1

REPORT INFORMATION
  Report Type: Spontaneous
  Country: US (occurrence: US)
  Receive Date: 20210107
  Receipt Date: 20210107
  Transmission Date: 20210419
  Serious: Yes (Other)
  Sender: FDA-Public Use
  Company Number: None

PATIENT
  Age: 51 Year
  Sex: Female
  Weight: 54 kg

DRUGS (13)
  1. NP THYROID [Concomitant]
     Active Substance: LEVOTHYROXINE\LIOTHYRONINE
  2. PROGESTERONE. [Concomitant]
     Active Substance: PROGESTERONE
  3. CURCUMIN [Concomitant]
     Active Substance: CURCUMIN
  4. CREON [Suspect]
     Active Substance: PANCRELIPASE AMYLASE\PANCRELIPASE LIPASE\PANCRELIPASE PROTEASE
     Indication: PANCREATIC FAILURE
     Dosage: ?          OTHER STRENGTH:USP UNITS;QUANTITY:1 CAPSULE(S);OTHER FREQUENCY:2?3 CAPS/MEAL;?
     Route: 048
     Dates: start: 20201223, end: 20210107
  5. VALTREX [Concomitant]
     Active Substance: VALACYCLOVIR HYDROCHLORIDE
  6. VIT D [Concomitant]
     Active Substance: VITAMIN D NOS
  7. CALCIUM [Concomitant]
     Active Substance: CALCIUM
  8. LEVOTHYROXINE. [Concomitant]
     Active Substance: LEVOTHYROXINE
  9. IVIG?GAMMAGUARD [Concomitant]
  10. ESTROGEN PATCH [Concomitant]
     Active Substance: ESTRADIOL
  11. B?VITAMINS [Concomitant]
  12. MAGNESIUM [Concomitant]
     Active Substance: MAGNESIUM
  13. MULTIVITAMIN [Concomitant]
     Active Substance: VITAMINS

REACTIONS (7)
  - Anal incontinence [None]
  - Functional gastrointestinal disorder [None]
  - Rash [None]
  - Nausea [None]
  - Product quality issue [None]
  - Abdominal pain [None]
  - Blood glucose decreased [None]

NARRATIVE: CASE EVENT DATE: 20201223
